FAERS Safety Report 19858788 (Version 1)
Quarter: 2021Q3

REPORT INFORMATION
  Report Type: Spontaneous
  Country: US (occurrence: US)
  Receive Date: 20210921
  Receipt Date: 20210921
  Transmission Date: 20211014
  Serious: Yes (Death)
  Sender: FDA-Public Use
  Company Number: US-CELLTRION INC.-2021US012722

PATIENT

DRUGS (1)
  1. RITUXIMAB. [Suspect]
     Active Substance: RITUXIMAB
     Indication: GLOMERULONEPHRITIS MEMBRANOUS

REACTIONS (4)
  - Chronic graft versus host disease [Fatal]
  - Off label use [Unknown]
  - Drug effective for unapproved indication [Unknown]
  - Acute respiratory failure [Fatal]
